FAERS Safety Report 12118238 (Version 3)
Quarter: 2022Q1

REPORT INFORMATION
  Report Type: Spontaneous
  Country: FR (occurrence: FR)
  Receive Date: 20160226
  Receipt Date: 20220324
  Transmission Date: 20220423
  Serious: Yes (Hospitalization, Other)
  Sender: FDA-Public Use
  Company Number: FR-UCBSA-2016006424

PATIENT
  Age: 26 Year
  Sex: Male

DRUGS (4)
  1. LACOSAMIDE [Suspect]
     Active Substance: LACOSAMIDE
     Indication: Epilepsy
     Dosage: UNKNOWN DOSE
  2. LACOSAMIDE [Suspect]
     Active Substance: LACOSAMIDE
     Dosage: 6 G (30 TABLETS OF 200MG) ONE TIME
  3. LAMOTRIGINE [Suspect]
     Active Substance: LAMOTRIGINE
     Indication: Epilepsy
     Dosage: UNKNOWN DOSE
  4. LAMOTRIGINE [Suspect]
     Active Substance: LAMOTRIGINE
     Dosage: 8 G (40 TABLETS OF 200MG), ONE TIME DOSE

REACTIONS (6)
  - Suicide attempt [Unknown]
  - Status epilepticus [Recovering/Resolving]
  - Agitation [Unknown]
  - Generalised tonic-clonic seizure [Recovering/Resolving]
  - Coma [Recovered/Resolved]
  - Overdose [Unknown]
